FAERS Safety Report 5102656-7 (Version None)
Quarter: 2006Q3

REPORT INFORMATION
  Report Type: 
  Country: None (occurrence: None)
  Receive Date: 20060912
  Receipt Date: 20060712
  Transmission Date: 20061208
  Serious: Yes (Other)
  Sender: FDA-Public Use
  Company Number: ES-BAYER-200612995GDS

PATIENT
  Age: 53 Year
  Sex: Female
  Weight: 72 kg

DRUGS (10)
  1. SORAFENIB [Suspect]
     Indication: RENAL CELL CARCINOMA STAGE UNSPECIFIED
     Dosage: TOTAL DAILY DOSE: 800 MG
     Route: 048
     Dates: start: 20060705, end: 20060707
  2. SORAFENIB [Suspect]
     Dosage: TOTAL DAILY DOSE: 800 MG
     Route: 048
     Dates: start: 20060613, end: 20060618
  3. SORAFENIB [Suspect]
     Route: 048
     Dates: start: 20060719
  4. MST [MORPHINE SULFATE] [Concomitant]
     Indication: BONE PAIN
     Route: 048
     Dates: start: 20060317
  5. PARIET [Concomitant]
     Indication: ABDOMINAL PAIN UPPER
     Route: 048
  6. ENALAPRIL MALEATE AND HYDROCHLOROTHIAZIDE [Concomitant]
     Indication: HYPERTENSION
     Route: 048
     Dates: start: 20060706, end: 20060719
  7. ENALAPRIL MALEATE AND HYDROCHLOROTHIAZIDE [Concomitant]
     Route: 048
     Dates: start: 20060707, end: 20060708
  8. FUROSEMIDE [Concomitant]
     Indication: HYPERTENSION
     Route: 042
     Dates: start: 20060707, end: 20060707
  9. DOXAZOSIN MESYLATE [Concomitant]
     Indication: HYPERTENSION
     Route: 048
     Dates: start: 20060708, end: 20060708
  10. LEXATIN [Concomitant]
     Indication: ANXIETY
     Route: 048
     Dates: start: 20060718

REACTIONS (5)
  - HEADACHE [None]
  - HYPERHIDROSIS [None]
  - HYPERTENSION [None]
  - SYNCOPE [None]
  - VOMITING [None]
